FAERS Safety Report 8307686-X (Version None)
Quarter: 2012Q2

REPORT INFORMATION
  Report Type: 
  Country: None (occurrence: None)
  Receive Date: 20120424
  Receipt Date: 20120424
  Transmission Date: 20120825
  Serious: No
  Sender: FDA-Public Use
  Company Number: None

PATIENT
  Age: 55 Year
  Sex: Female
  Weight: 67.131 kg

DRUGS (1)
  1. CITALOPRAM HYDROBROMIDE [Suspect]
     Indication: DEPRESSION
     Dates: start: 20111201, end: 20120415

REACTIONS (7)
  - DISTURBANCE IN ATTENTION [None]
  - DISORIENTATION [None]
  - DECREASED APPETITE [None]
  - NAUSEA [None]
  - HEADACHE [None]
  - ASTHENIA [None]
  - BALANCE DISORDER [None]
